FAERS Safety Report 5659413-2 (Version None)
Quarter: 2008Q1

REPORT INFORMATION
  Report Type: 
  Country: None (occurrence: None)
  Receive Date: 20080311
  Receipt Date: 20080218
  Transmission Date: 20080703
  Serious: Yes (Life-Threatening, Hospitalization)
  Sender: FDA-Public Use
  Company Number: GB-RANBAXY-2008RR-13162

PATIENT

DRUGS (2)
  1. FLUOXETINE [Suspect]
     Dosage: 20 MG, UNK
     Route: 048
     Dates: start: 20071215, end: 20080107
  2. FERROUS SULPHATE 200MG TABLETS [Concomitant]
     Indication: ANAEMIA
     Dosage: 200 MG, UNK
     Route: 048

REACTIONS (2)
  - INTENTIONAL OVERDOSE [None]
  - SUICIDAL IDEATION [None]
